FAERS Safety Report 5984747-1 (Version None)
Quarter: 2008Q4

REPORT INFORMATION
  Report Type: 
  Country: None (occurrence: None)
  Receive Date: 20081208
  Receipt Date: 20081117
  Transmission Date: 20090506
  Serious: No
  Sender: FDA-Public Use
  Company Number: US-B.I. PHARMACEUTICALS,INC./RIDGEFIELD-2008-BP-17349BP

PATIENT
  Age: 58 Year
  Sex: Male
  Weight: 73 kg

DRUGS (1)
  1. FLOMAX [Suspect]
     Dates: end: 20081117

REACTIONS (1)
  - SYNCOPE [None]
